FAERS Safety Report 8392515-9 (Version None)
Quarter: 2012Q2

REPORT INFORMATION
  Report Type: 
  Country: None (occurrence: None)
  Receive Date: 20120529
  Receipt Date: 20120518
  Transmission Date: 20120825
  Serious: Yes (Other)
  Sender: FDA-Public Use
  Company Number: JP-VERTEX PHARMACEUTICALS INC.-AE-2012-007687

PATIENT
  Age: 61 Year
  Sex: Male

DRUGS (9)
  1. EPADEL S [Concomitant]
     Route: 048
  2. CLARITIN REDITABS [Concomitant]
     Route: 048
  3. TELAVIC (TELAPREVIR) [Suspect]
     Indication: HEPATITIS C
     Route: 048
     Dates: start: 20120313
  4. FEROTYM [Concomitant]
     Route: 048
  5. RIBAVIRIN [Concomitant]
     Indication: HEPATITIS C
     Route: 048
     Dates: start: 20120313, end: 20120410
  6. RIBAVIRIN [Concomitant]
     Route: 048
     Dates: start: 20120411, end: 20120415
  7. LIVALO [Concomitant]
     Route: 048
  8. RIBAVIRIN [Concomitant]
     Route: 048
     Dates: start: 20120416
  9. PEGINTERFERON ALFA-2B [Concomitant]
     Route: 051
     Dates: start: 20120313

REACTIONS (2)
  - ANAEMIA [None]
  - RASH [None]
